FAERS Safety Report 17684269 (Version 1)
Quarter: 2020Q2

REPORT INFORMATION
  Report Type: Spontaneous
  Country: US (occurrence: US)
  Receive Date: 20200418
  Receipt Date: 20200418
  Transmission Date: 20200714
  Serious: Yes (Other)
  Sender: FDA-Public Use
  Company Number: None

PATIENT
  Age: 60 Year
  Sex: Female
  Weight: 65.25 kg

DRUGS (5)
  1. EMGALITY [Suspect]
     Active Substance: GALCANEZUMAB-GNLM
     Indication: MIGRAINE PROPHYLAXIS
     Dosage: ?          QUANTITY:1 INJECTION(S);OTHER FREQUENCY:MONTHLY;?
     Route: 058
  2. SUMATRIPTAN 100MG [Concomitant]
     Active Substance: SUMATRIPTAN
  3. TOPIRAMATE 50MG [Concomitant]
     Active Substance: TOPIRAMATE
  4. VITAMIN C [Concomitant]
     Active Substance: ASCORBIC ACID
  5. VIT B12 SUPPLEMENTS [Concomitant]

REACTIONS (3)
  - Weight increased [None]
  - Abdominal distension [None]
  - Constipation [None]

NARRATIVE: CASE EVENT DATE: 20200213
